FAERS Safety Report 5346093-9 (Version None)
Quarter: 2007Q2

REPORT INFORMATION
  Report Type: 
  Country: None (occurrence: None)
  Receive Date: 20070605
  Receipt Date: 20070601
  Transmission Date: 20071010
  Serious: Yes (Death)
  Sender: FDA-Public Use
  Company Number: US-SOLVAY-00207032580

PATIENT
  Age: 711 Month
  Sex: Male

DRUGS (3)
  1. EFFEXOR [Concomitant]
     Indication: ILL-DEFINED DISORDER
     Dosage: DAILY DOSE:  UNKNOWN
     Route: 048
     Dates: end: 20061127
  2. ANDROGEL [Suspect]
     Indication: ILL-DEFINED DISORDER
     Dosage: DAILY DOSE:  UNKNOWN
     Route: 062
     Dates: start: 20060101, end: 20061127
  3. LOPRESSOR [Concomitant]
     Indication: HYPERTENSION
     Dosage: DAILY DOSE:  UNKNOWN
     Route: 048
     Dates: end: 20061127

REACTIONS (1)
  - MYOCARDIAL INFARCTION [None]
